FAERS Safety Report 14855856 (Version 3)
Quarter: 2020Q3

REPORT INFORMATION
  Report Type: Spontaneous
  Country: CA (occurrence: CA)
  Receive Date: 20180507
  Receipt Date: 20180720
  Transmission Date: 20201104
  Serious: Yes (Hospitalization)
  Sender: FDA-Public Use
  Company Number: CA-CELGENEUS-CAN-20180501668

PATIENT
  Age: 58 Year
  Sex: Female

DRUGS (5)
  1. ABRAXANE [Suspect]
     Active Substance: PACLITAXEL
     Indication: PANCREATIC CARCINOMA METASTATIC
     Dosage: 1818 MILLIGRAM
     Route: 042
     Dates: start: 20170629
  2. TREMELIMUMAB. [Concomitant]
     Active Substance: TREMELIMUMAB
     Indication: PANCREATIC CARCINOMA METASTATIC
     Dosage: 75 MILLIGRAM
     Route: 042
     Dates: start: 20170629
  3. DURVALUMAB. [Concomitant]
     Active Substance: DURVALUMAB
     Dosage: 1500 MILLIGRAM
     Route: 042
     Dates: start: 20170629, end: 20180208
  4. DURVALUMAB. [Concomitant]
     Active Substance: DURVALUMAB
     Indication: PANCREATIC CARCINOMA METASTATIC
     Dosage: 1500 MILLIGRAM
     Route: 042
  5. GEMCITABINE. [Concomitant]
     Active Substance: GEMCITABINE
     Indication: PANCREATIC CARCINOMA METASTATIC
     Dosage: 180 MILLIGRAM
     Route: 042
     Dates: start: 20170629

REACTIONS (1)
  - Bile duct stenosis [Recovered/Resolved]

NARRATIVE: CASE EVENT DATE: 20180309
